FAERS Safety Report 20231538 (Version 2)
Quarter: 2022Q1

REPORT INFORMATION
  Report Type: Spontaneous
  Country: US (occurrence: US)
  Receive Date: 20211227
  Receipt Date: 20220112
  Transmission Date: 20220423
  Serious: No
  Sender: FDA-Public Use
  Company Number: US-CELGENE-USA-20211206195

PATIENT
  Sex: Female
  Weight: 88.530 kg

DRUGS (2)
  1. REVLIMID [Suspect]
     Active Substance: LENALIDOMIDE
     Indication: Myelodysplastic syndrome
     Dosage: 10 MILLIGRAM
     Route: 048
     Dates: start: 20210501
  2. REVLIMID [Suspect]
     Active Substance: LENALIDOMIDE
     Indication: Chronic lymphocytic leukaemia
     Dosage: 5 MILLIGRAM
     Route: 048
     Dates: start: 202106

REACTIONS (2)
  - Spinal stenosis [Not Recovered/Not Resolved]
  - Arthritis [Not Recovered/Not Resolved]

NARRATIVE: CASE EVENT DATE: 20210101
